FAERS Safety Report 9691903 (Version 3)
Quarter: 2014Q1

REPORT INFORMATION
  Report Type: Report from Study
  Country: IT (occurrence: IT)
  Receive Date: 20131117
  Receipt Date: 20140107
  Transmission Date: 20141002
  Serious: Yes (Other)
  Sender: FDA-Public Use
  Company Number: IT-ROCHE-1158537

PATIENT
  Sex: 0

DRUGS (2)
  1. RITUXIMAB [Suspect]
     Indication: NON-HODGKIN^S LYMPHOMA
     Dosage: AT DAY 14 OF EVERY COURSE
     Route: 065
  2. LENALIDOMIDE [Suspect]
     Indication: NON-HODGKIN^S LYMPHOMA
     Route: 048

REACTIONS (9)
  - Neutropenia [Unknown]
  - Thrombocytopenia [Unknown]
  - Anaemia [Unknown]
  - Infection [Unknown]
  - Pyrexia [Unknown]
  - Dyspnoea [Unknown]
  - Hypersensitivity [Unknown]
  - Renal failure [Unknown]
  - Erythema [Unknown]
